FAERS Safety Report 6755962-4 (Version None)
Quarter: 2010Q2

REPORT INFORMATION
  Report Type: 
  Country: None (occurrence: None)
  Receive Date: 20100604
  Receipt Date: 20100526
  Transmission Date: 20101027
  Serious: Yes (Hospitalization)
  Sender: FDA-Public Use
  Company Number: PHHY2010BE33871

PATIENT
  Sex: Male

DRUGS (5)
  1. EXELON [Suspect]
     Indication: DEMENTIA ALZHEIMER'S TYPE
     Dosage: 4.6 MG, UNK
     Route: 062
  2. EXELON [Suspect]
     Dosage: 9.5 MG, UNK
     Route: 062
     Dates: end: 20100519
  3. EXELON [Suspect]
     Dosage: 9.5 MG, UNK
     Route: 062
     Dates: start: 20100525
  4. SPIRIVA [Concomitant]
  5. ASAFLOW [Concomitant]

REACTIONS (5)
  - HYPERVENTILATION [None]
  - NAUSEA [None]
  - RESPIRATORY ALKALOSIS [None]
  - VOMITING [None]
  - WRONG TECHNIQUE IN DRUG USAGE PROCESS [None]
